FAERS Safety Report 9352147 (Version 1)
Quarter: 2013Q2

REPORT INFORMATION
  Report Type: Spontaneous
  Country: IT (occurrence: None)
  Receive Date: 20130612
  Receipt Date: 20130612
  Transmission Date: 20140414
  Serious: Yes (Life-Threatening)
  Sender: FDA-Public Use
  Company Number: AUR-APL-2013-04756

PATIENT
  Age: 68 Year
  Sex: Male

DRUGS (3)
  1. AMOXICILLIN [Suspect]
     Indication: PRODUCT USED FOR UNKNOWN INDICATION
     Dosage: (1 DOSAGE FORMS, TOTAL), ORAL
     Route: 048
     Dates: start: 20130410, end: 20130410
  2. MEPIVACAINE HYDROCHLORIDE [Suspect]
     Indication: PRODUCT USED FOR UNKNOWN INDICATION
     Dosage: (1 DOSAGE FORMS, TOTAL), SUBCUTANEOUS
     Route: 058
     Dates: start: 20130410, end: 20130410
  3. CARVASIN [Concomitant]

REACTIONS (4)
  - Flushing [None]
  - Hypotension [None]
  - Malaise [None]
  - Hypersensitivity [None]
